FAERS Safety Report 18340576 (Version 1)
Quarter: 2020Q4

REPORT INFORMATION
  Report Type: Spontaneous
  Country: US (occurrence: US)
  Receive Date: 20201002
  Receipt Date: 20201002
  Transmission Date: 20210113
  Serious: No
  Sender: FDA-Public Use
  Company Number: US-009507513-2010USA000907

PATIENT
  Sex: Male

DRUGS (2)
  1. ENTEREG [Suspect]
     Active Substance: ALVIMOPAN
     Indication: GASTROINTESTINAL DISORDER
     Dosage: 12 MILLIGRAM, ONCE 30 MIN TO TWO HOURS PRIOR TO SURGERY
     Route: 048
  2. ENTEREG [Suspect]
     Active Substance: ALVIMOPAN
     Dosage: 12 MILLIGRAM, TWICE DAILY UNTIL FIRST BOWEL MOVEMENT OR DISCHARGE
     Route: 048

REACTIONS (1)
  - Off label use [Unknown]
